FAERS Safety Report 7655021-2 (Version None)
Quarter: 2011Q3

REPORT INFORMATION
  Report Type: 
  Country: None (occurrence: None)
  Receive Date: 20110804
  Receipt Date: 20110721
  Transmission Date: 20111222
  Serious: Yes (Other)
  Sender: FDA-Public Use
  Company Number: PL-UCBSA-034734

PATIENT
  Age: 34 Year
  Sex: Female
  Weight: 55 kg

DRUGS (3)
  1. DEPAKENE [Concomitant]
     Dosage: 800MG - 1000MG
  2. KEPPRA [Suspect]
     Indication: EPILEPSY
     Route: 048
     Dates: start: 20070201, end: 20070901
  3. DEPAKENE [Concomitant]
     Indication: EPILEPSY
     Route: 048
     Dates: start: 20060101

REACTIONS (4)
  - EPILEPSY [None]
  - CONFUSIONAL STATE [None]
  - POSTICTAL HEADACHE [None]
  - DRUG INEFFECTIVE [None]
